FAERS Safety Report 20447527 (Version 1)
Quarter: 2022Q1

REPORT INFORMATION
  Report Type: Report from Study
  Country: US (occurrence: US)
  Receive Date: 20220209
  Receipt Date: 20220209
  Transmission Date: 20220423
  Serious: No
  Sender: FDA-Public Use
  Company Number: US-HRARD-2021000173

PATIENT
  Sex: Male

DRUGS (10)
  1. LYSODREN [Suspect]
     Active Substance: MITOTANE
     Dosage: 1000 MG TID
     Route: 048
     Dates: start: 20210209
  2. LYSODREN [Suspect]
     Active Substance: MITOTANE
     Dosage: 500 MG TID AS OF 12 MAR 2021 (UNSPECIFIED IF BEFORE OR AFTER DOSE INCREASING)
     Route: 048
     Dates: start: 2021
  3. LYSODREN [Suspect]
     Active Substance: MITOTANE
     Dosage: 03 TABLETS THREE TIMES DAILY AS OF 07 OCT 2021
     Route: 048
     Dates: start: 2021
  4. KEYTRUDA [Suspect]
     Active Substance: PEMBROLIZUMAB
  5. carvedilol 3.125 mg tablets [Concomitant]
  6. CITALOPRAM [Concomitant]
     Active Substance: CITALOPRAM HYDROBROMIDE
  7. hydrocortisone cream 0.5% [Concomitant]
  8. ketoconazole 200 mg tablet [Concomitant]
  9. ONDANSETRON [Concomitant]
     Active Substance: ONDANSETRON
  10. valsartan 160 mg tablet [Concomitant]

REACTIONS (3)
  - Peripheral swelling [Not Recovered/Not Resolved]
  - Product dose omission issue [Recovered/Resolved]
  - Diarrhoea [Not Recovered/Not Resolved]

NARRATIVE: CASE EVENT DATE: 20210101
